FAERS Safety Report 10053230 (Version 1)
Quarter: 2014Q2

REPORT INFORMATION
  Report Type: Spontaneous
  Country: FR (occurrence: FR)
  Receive Date: 20140402
  Receipt Date: 20140402
  Transmission Date: 20141212
  Serious: Yes (Hospitalization)
  Sender: FDA-Public Use
  Company Number: FR-VIIV HEALTHCARE LIMITED-B0980210A

PATIENT
  Age: 71 Year
  Sex: Male

DRUGS (2)
  1. KIVEXA [Suspect]
     Indication: HIV INFECTION
     Dosage: 1TAB PER DAY
     Route: 048
     Dates: start: 20130218, end: 20130819
  2. SUSTIVA [Concomitant]
     Indication: HIV INFECTION
     Route: 065
     Dates: start: 20130218

REACTIONS (1)
  - Pulmonary embolism [Recovered/Resolved]
